FAERS Safety Report 19446485 (Version 2)
Quarter: 2021Q3

REPORT INFORMATION
  Report Type: Spontaneous
  Country: ES (occurrence: ES)
  Receive Date: 20210622
  Receipt Date: 20210822
  Transmission Date: 20211014
  Serious: Yes (Other)
  Sender: FDA-Public Use
  Company Number: ES-CELLTRION INC.-2021ES008272

PATIENT

DRUGS (10)
  1. IMMUNOGLOBULIN I.V [Suspect]
     Active Substance: HUMAN IMMUNOGLOBULIN G
     Indication: ADULT T-CELL LYMPHOMA/LEUKAEMIA
     Dosage: IVIG X5 DAYS
  2. MMF [Suspect]
     Active Substance: MYCOPHENOLATE MOFETIL
     Indication: ADULT T-CELL LYMPHOMA/LEUKAEMIA
     Dosage: MMF X3 WEEKS
  3. THERAPEUTIC PLASMA EXCHANGE (UNSPECIFIED) [Suspect]
     Active Substance: UNSPECIFIED INGREDIENT
     Indication: ADULT T-CELL LYMPHOMA/LEUKAEMIA
     Dosage: TPE X4 SESSIONS
  4. CYCLOPHOSPHAMIDE. [Suspect]
     Active Substance: CYCLOPHOSPHAMIDE
     Indication: PROPHYLAXIS AGAINST TRANSPLANT REJECTION
     Dosage: 50 MG/KG, QD (ON DAYS +3 AND +4)
     Route: 065
  5. TACROLIMUS. [Suspect]
     Active Substance: TACROLIMUS
     Indication: ADULT T-CELL LYMPHOMA/LEUKAEMIA
     Dosage: FK (TACROLIMUS) X5 DAYS
  6. BUSULFAN. [Suspect]
     Active Substance: BUSULFAN
     Indication: PROPHYLAXIS AGAINST TRANSPLANT REJECTION
     Dosage: 3.2 MG/KG, QD (ON DAYS ?6 TO ?3)
     Route: 042
  7. RITUXIMAB (UNKNOWN) [Suspect]
     Active Substance: RITUXIMAB
     Indication: ADULT T-CELL LYMPHOMA/LEUKAEMIA
     Dosage: 375 MG/M2 WEEKLY (MEDIAN DOSES 3.5 DOSES, RANGE 1?6, ADMINISTERED WEEKLY STARTING FROM DAY ?35) X3 D
  8. RITUXIMAB (UNKNOWN) [Suspect]
     Active Substance: RITUXIMAB
     Indication: PROPHYLAXIS AGAINST TRANSPLANT REJECTION
     Dosage: 375 MG/M2, 1/WEEK
     Route: 042
  9. MYCOPHENOLATE MOFETIL. [Suspect]
     Active Substance: MYCOPHENOLATE MOFETIL
     Indication: PROPHYLAXIS AGAINST TRANSPLANT REJECTION
     Dosage: 10 MG/KG, QD
     Route: 065
  10. TACROLIMUS. [Suspect]
     Active Substance: TACROLIMUS
     Indication: PROPHYLAXIS AGAINST TRANSPLANT REJECTION
     Dosage: 0.06 MG/KG, QD
     Route: 065

REACTIONS (5)
  - Spinal cord disorder [Unknown]
  - Cytomegalovirus infection reactivation [Recovering/Resolving]
  - Myelitis [Unknown]
  - Drug effective for unapproved indication [Unknown]
  - Off label use [Unknown]
